FAERS Safety Report 8553175-7 (Version None)
Quarter: 2012Q3

REPORT INFORMATION
  Report Type: 
  Country: None (occurrence: None)
  Receive Date: 20120731
  Receipt Date: 20120720
  Transmission Date: 20120928
  Serious: Yes (Hospitalization)
  Sender: FDA-Public Use
  Company Number: US-BAYER-2012-074312

PATIENT
  Age: 30 Year
  Sex: Female
  Weight: 86.168 kg

DRUGS (5)
  1. YASMIN [Suspect]
  2. TYLENOL (CAPLET) [Concomitant]
     Dosage: 325 MG, PRN
  3. MOTRIN [Concomitant]
     Dosage: UNK UNK, PRN
  4. YAZ [Suspect]
  5. TRAMADOL HYDROCHLORIDE [Concomitant]

REACTIONS (2)
  - INTRACRANIAL VENOUS SINUS THROMBOSIS [None]
  - JUGULAR VEIN THROMBOSIS [None]
